FAERS Safety Report 23336910 (Version 1)
Quarter: 2023Q4

REPORT INFORMATION
  Report Type: Report from Study
  Country: DE (occurrence: DE)
  Receive Date: 20231226
  Receipt Date: 20231226
  Transmission Date: 20240109
  Serious: Yes (Other)
  Sender: FDA-Public Use
  Company Number: DE-REATA PHARMACEUTICALS INC.-2023DERTAR40000031

PATIENT

DRUGS (1)
  1. OMAVELOXOLONE [Suspect]
     Active Substance: OMAVELOXOLONE
     Indication: Product used for unknown indication
     Dosage: 150 MILLIGRAM, QD
     Route: 048
     Dates: start: 20231128

REACTIONS (3)
  - Pyrexia [Unknown]
  - Headache [Unknown]
  - Fatigue [Unknown]

NARRATIVE: CASE EVENT DATE: 20231212
